FAERS Safety Report 15913197 (Version 3)
Quarter: 2019Q3

REPORT INFORMATION
  Report Type: Spontaneous
  Country: JP (occurrence: JP)
  Receive Date: 20190204
  Receipt Date: 20190902
  Transmission Date: 20191004
  Serious: Yes (Death, Hospitalization, Other)
  Sender: FDA-Public Use
  Company Number: JP-009507513-1901JPN002817J

PATIENT
  Age: 64 Year
  Sex: Female
  Weight: 72 kg

DRUGS (11)
  1. NAIXAN [Concomitant]
     Active Substance: NAPROXEN SODIUM
     Dosage: 100 MILLIGRAM, TID
     Route: 048
     Dates: start: 20190626
  2. LANSOPRAZOLE OD [Concomitant]
     Active Substance: LANSOPRAZOLE
     Dosage: 15 MILLIGRAM, QD
     Route: 048
     Dates: start: 20180609
  3. NAIXAN [Concomitant]
     Active Substance: NAPROXEN SODIUM
     Dosage: 100 MILLIGRAM, BID
     Route: 048
     Dates: start: 20180612, end: 20180625
  4. KEYTRUDA [Suspect]
     Active Substance: PEMBROLIZUMAB
     Indication: NON-SMALL CELL LUNG CANCER
     Dosage: 200 MILLIGRAM, Q3W
     Route: 041
     Dates: start: 20180625, end: 20180905
  5. FERROUS SULFATE. [Concomitant]
     Active Substance: FERROUS SULFATE
     Dosage: 105 MILLIGRAM, BID
     Route: 048
     Dates: start: 20180619
  6. FUROSEMIDE. [Concomitant]
     Active Substance: FUROSEMIDE
     Dosage: 20 MILLIGRAM, QD
     Route: 048
     Dates: start: 20180727
  7. MAGMITT [Concomitant]
     Active Substance: MAGNESIUM OXIDE
     Dosage: 500 MILLIGRAM, TID
     Route: 048
     Dates: start: 20180622
  8. SPIRONOLACTONE. [Concomitant]
     Active Substance: SPIRONOLACTONE
     Dosage: 25 MILLIGRAM, QD
     Route: 048
     Dates: start: 20180727
  9. DIART [Concomitant]
     Active Substance: AZOSEMIDE
     Dosage: 30 MILLIGRAM, QD
     Route: 048
     Dates: start: 20180706, end: 20180709
  10. DIART [Concomitant]
     Active Substance: AZOSEMIDE
     Dosage: 60 MILLIGRAM, QD
     Route: 048
     Dates: start: 20180710
  11. ALINAMIN F [Concomitant]
     Active Substance: FURSULTIAMINE HYDROCHLORIDE
     Dosage: 25 MILLIGRAM, BID
     Route: 048
     Dates: start: 20180817, end: 20180927

REACTIONS (3)
  - Malignant neoplasm progression [Fatal]
  - Colitis [Recovering/Resolving]
  - Haemorrhage [Unknown]

NARRATIVE: CASE EVENT DATE: 201809
